FAERS Safety Report 12128176 (Version 5)
Quarter: 2019Q4

REPORT INFORMATION
  Report Type: Spontaneous
  Country: US (occurrence: US)
  Receive Date: 20160229
  Receipt Date: 20191219
  Transmission Date: 20200122
  Serious: Yes (Other)
  Sender: FDA-Public Use
  Company Number: US-SA-2016SA025559

PATIENT
  Age: 93 Year
  Sex: Female

DRUGS (4)
  1. IRBESARTAN. [Suspect]
     Active Substance: IRBESARTAN
     Dosage: 75 MG,QD
     Route: 065
     Dates: start: 20160207
  2. AVAPRO [Suspect]
     Active Substance: IRBESARTAN
     Dosage: 150 MG, BID
     Route: 065
     Dates: start: 20160715
  3. IRBESARTAN. [Suspect]
     Active Substance: IRBESARTAN
     Dosage: 150 MG,HS
     Route: 065
     Dates: start: 20160206, end: 20160206
  4. AVAPRO [Suspect]
     Active Substance: IRBESARTAN
     Dosage: UNK
     Route: 065
     Dates: start: 19710615

REACTIONS (7)
  - Suicide attempt [Unknown]
  - Product label issue [Unknown]
  - Throat tightness [Unknown]
  - Somnolence [Unknown]
  - Drug hypersensitivity [Unknown]
  - Somnolence [Unknown]
  - Feeling abnormal [Unknown]

NARRATIVE: CASE EVENT DATE: 20160215
